FAERS Safety Report 9804166 (Version 2)
Quarter: 2014Q2

REPORT INFORMATION
  Report Type: Spontaneous
  Country: BR (occurrence: BR)
  Receive Date: 20140108
  Receipt Date: 20140506
  Transmission Date: 20141212
  Serious: Yes (Other)
  Sender: FDA-Public Use
  Company Number: BR-ABBVIE-14P-020-1187101-00

PATIENT
  Sex: Male

DRUGS (1)
  1. DEPAKOTE SPRINKLE [Suspect]
     Indication: PRODUCT USED FOR UNKNOWN INDICATION
     Dosage: PATIENT TOOK OVER 70 DAMAGED TABLETS

REACTIONS (4)
  - Cardiac arrest [Unknown]
  - Unevaluable event [Unknown]
  - Product physical issue [Unknown]
  - Poor quality drug administered [Unknown]
